FAERS Safety Report 7354570-4 (Version None)
Quarter: 2011Q1

REPORT INFORMATION
  Report Type: 
  Country: None (occurrence: None)
  Receive Date: 20110316
  Receipt Date: 20110308
  Transmission Date: 20110831
  Serious: Yes (Hospitalization)
  Sender: FDA-Public Use
  Company Number: US-US-EMD SERONO, INC.-7032743

PATIENT
  Sex: Male
  Weight: 93 kg

DRUGS (5)
  1. BACLOFEN [Concomitant]
     Dates: start: 20050101
  2. PROVIGIL [Concomitant]
     Dates: start: 20090101
  3. OXYBUTYNIN [Concomitant]
  4. ADVIL LIQUI-GELS [Concomitant]
     Indication: PAIN
  5. REBIF [Suspect]
     Indication: MULTIPLE SCLEROSIS
     Route: 058
     Dates: start: 20050101

REACTIONS (11)
  - FATIGUE [None]
  - INFLUENZA LIKE ILLNESS [None]
  - INJECTION SITE REACTION [None]
  - INJECTION SITE ERYTHEMA [None]
  - NON-HODGKIN'S LYMPHOMA [None]
  - FEELING ABNORMAL [None]
  - BLOOD TEST ABNORMAL [None]
  - INJECTION SITE PAIN [None]
  - INFECTION IN AN IMMUNOCOMPROMISED HOST [None]
  - COGNITIVE DISORDER [None]
  - PYREXIA [None]
